FAERS Safety Report 8959286 (Version 2)
Quarter: 2013Q1

REPORT INFORMATION
  Report Type: Spontaneous
  Country: US (occurrence: US)
  Receive Date: 20121211
  Receipt Date: 20130109
  Transmission Date: 20140127
  Serious: Yes (Hospitalization)
  Sender: FDA-Public Use
  Company Number: US-B.I. PHARMACEUTICALS,INC./RIDGEFIELD-2012-BI-02446BP

PATIENT
  Age: 78 None
  Sex: Male
  Weight: 97.98 kg

DRUGS (9)
  1. PRADAXA [Suspect]
     Indication: ATRIAL FIBRILLATION
     Dosage: 300 MG
     Route: 048
     Dates: start: 20110802
  2. ALLOPURINOL [Concomitant]
     Indication: GOUT
     Route: 048
  3. FUROSEMIDE [Concomitant]
     Route: 048
  4. METFORMIN [Concomitant]
     Indication: DIABETES MELLITUS
     Route: 048
  5. METOPROLOL TARTRATE [Concomitant]
     Indication: HYPERTENSION
     Route: 048
  6. GLYBURIDE [Concomitant]
     Indication: DIABETES MELLITUS
     Route: 048
  7. LANTUS INSULIN [Concomitant]
     Indication: DIABETES MELLITUS
     Route: 058
  8. CLOPIDOGREL [Concomitant]
     Indication: ATRIAL FIBRILLATION
     Route: 048
  9. GABAPENTIN [Concomitant]
     Indication: NEUROPATHY PERIPHERAL
     Route: 048

REACTIONS (3)
  - Diabetic foot infection [Recovered/Resolved]
  - Infection [Recovered/Resolved]
  - Diabetic gangrene [Recovered/Resolved]
